FAERS Safety Report 9153430 (Version 1)
Quarter: 2013Q1

REPORT INFORMATION
  Report Type: Spontaneous
  Country: US (occurrence: US)
  Receive Date: 20130311
  Receipt Date: 20130311
  Transmission Date: 20140127
  Serious: Yes (Hospitalization, Other)
  Sender: FDA-Public Use
  Company Number: US-JNJFOC-20130301318

PATIENT
  Age: 12 Month
  Sex: Female

DRUGS (4)
  1. DIPHENHYDRAMINE [Suspect]
     Indication: CELLULITIS
     Route: 065
  2. DIPHENHYDRAMINE [Suspect]
     Indication: ARTHROPOD BITE
     Route: 065
  3. CLINDAMYCIN [Suspect]
     Indication: CELLULITIS
     Route: 065
  4. CLINDAMYCIN [Suspect]
     Indication: ARTHROPOD BITE
     Route: 065

REACTIONS (1)
  - Acute haemorrhagic oedema of infancy [Recovered/Resolved]
